FAERS Safety Report 7717161-9 (Version None)
Quarter: 2011Q3

REPORT INFORMATION
  Report Type: 
  Country: None (occurrence: None)
  Receive Date: 20110830
  Receipt Date: 20110819
  Transmission Date: 20111222
  Serious: Yes (Hospitalization)
  Sender: FDA-Public Use
  Company Number: FR-UCBSA-039704

PATIENT
  Sex: Male

DRUGS (3)
  1. CLONAZEPAM [Concomitant]
     Indication: LENNOX-GASTAUT SYNDROME
  2. VIMPAT [Suspect]
     Indication: LENNOX-GASTAUT SYNDROME
     Dosage: ??/JUL/2011 TO  ??/JUL/2011:PROGRESSIVE INCREASE OF DOSE UP TO  60 MG X 2 (ORAL SOLUTION)
     Route: 048
     Dates: start: 20110728, end: 20110728
  3. DEPAKENE [Concomitant]
     Indication: LENNOX-GASTAUT SYNDROME

REACTIONS (4)
  - MYDRIASIS [None]
  - VOMITING [None]
  - ASTHENIA [None]
  - NAUSEA [None]
